FAERS Safety Report 17151421 (Version 1)
Quarter: 2019Q4

REPORT INFORMATION
  Report Type: Spontaneous
  Country: CA (occurrence: CA)
  Receive Date: 20191213
  Receipt Date: 20191213
  Transmission Date: 20200122
  Serious: Yes (Other)
  Sender: FDA-Public Use
  Company Number: CA-PFIZER INC-2019539502

PATIENT
  Age: 49 Year
  Sex: Male

DRUGS (9)
  1. 5-ASA [Suspect]
     Active Substance: MESALAMINE
     Dosage: UNK
  2. METRONIDAZOLE. [Suspect]
     Active Substance: METRONIDAZOLE
     Dosage: UNK
  3. PREDNISONE. [Suspect]
     Active Substance: PREDNISONE
     Dosage: UNK
  4. VITAMIN D [COLECALCIFEROL] [Suspect]
     Active Substance: CHOLECALCIFEROL
     Dosage: UNK
  5. CIPROFLOXACIN. [Suspect]
     Active Substance: CIPROFLOXACIN
     Dosage: UNK
  6. CALCIUM [Suspect]
     Active Substance: CALCIUM
     Dosage: UNK
  7. CODEINE [Suspect]
     Active Substance: CODEINE
     Dosage: UNK
  8. AZATHIOPRINE. [Suspect]
     Active Substance: AZATHIOPRINE
     Dosage: UNK
  9. ACETAMINOPHEN. [Suspect]
     Active Substance: ACETAMINOPHEN
     Dosage: UNK

REACTIONS (9)
  - Abdominal pain [Unknown]
  - Fatigue [Unknown]
  - Abdominal distension [Unknown]
  - Vomiting [Unknown]
  - Lethargy [Unknown]
  - Abdominal pain upper [Unknown]
  - Chronic gastrointestinal bleeding [Unknown]
  - Defaecation urgency [Unknown]
  - Anal fissure [Unknown]
